FAERS Safety Report 5405862-7 (Version None)
Quarter: 2007Q3

REPORT INFORMATION
  Report Type: 
  Country: None (occurrence: None)
  Receive Date: 20070806
  Receipt Date: 20070724
  Transmission Date: 20080115
  Serious: Yes (Hospitalization)
  Sender: FDA-Public Use
  Company Number: GB-JNJFOC-20070800914

PATIENT
  Age: 83 Year
  Sex: Female
  Weight: 60 kg

DRUGS (6)
  1. TRAMADOL HCL [Suspect]
     Indication: PAIN MANAGEMENT
     Route: 048
     Dates: start: 20070301, end: 20070614
  2. ASPIRIN [Concomitant]
     Route: 065
  3. DIPYRIDAMOLE [Concomitant]
     Route: 065
  4. LANOSPRAZOLE [Concomitant]
     Route: 065
  5. PERINDOPRIL ERBUMINE [Concomitant]
     Route: 065
  6. SIMVASTATIN [Concomitant]
     Route: 065

REACTIONS (3)
  - CONFUSIONAL STATE [None]
  - FALL [None]
  - MUSCULAR WEAKNESS [None]
